FAERS Safety Report 12512204 (Version 1)
Quarter: 2016Q2

REPORT INFORMATION
  Report Type: Spontaneous
  Country: US (occurrence: None)
  Receive Date: 20160629
  Receipt Date: 20160629
  Transmission Date: 20160815
  Serious: Yes (Hospitalization)
  Sender: FDA-Public Use
  Company Number: None

PATIENT
  Sex: Male

DRUGS (1)
  1. SUTENT [Suspect]
     Active Substance: SUNITINIB MALATE
     Indication: MALIGNANT CONNECTIVE TISSUE NEOPLASM
     Route: 048
     Dates: start: 20151007

REACTIONS (5)
  - Laboratory test abnormal [None]
  - Rhinorrhoea [None]
  - Pallor [None]
  - Lacrimation increased [None]
  - Diarrhoea [None]

NARRATIVE: CASE EVENT DATE: 2016
